FAERS Safety Report 9751647 (Version 8)
Quarter: 2014Q2

REPORT INFORMATION
  Report Type: Report from Study
  Country: CA (occurrence: CA)
  Receive Date: 20131212
  Receipt Date: 20140408
  Transmission Date: 20141212
  Serious: Yes (Hospitalization, Other)
  Sender: FDA-Public Use
  Company Number: CA-ROCHE-1318649

PATIENT
  Age: 49 Year
  Sex: Female
  Weight: 81.5 kg

DRUGS (11)
  1. HERCEPTIN [Suspect]
     Indication: BREAST CANCER
     Route: 065
     Dates: start: 2009
  2. KADCYLA [Suspect]
     Indication: BREAST CANCER METASTATIC
     Route: 042
     Dates: start: 20131211, end: 20140305
  3. XELODA [Suspect]
     Indication: BREAST CANCER
     Route: 048
  4. LORAZEPAM [Concomitant]
     Dosage: AT NIGHT
     Route: 048
  5. DILAUDID [Concomitant]
     Dosage: AS NEEDED
     Route: 048
  6. TYLENOL ARTHRITIS [Concomitant]
     Indication: PAIN
     Route: 065
  7. PANTOLOC [Concomitant]
     Route: 048
  8. DEXAMETHASONE [Concomitant]
     Dosage: 1.5 TABLET
     Route: 048
  9. HYDROMORPH CONTIN [Concomitant]
     Indication: PAIN
     Dosage: 3 MG AM AND 2 MG PM
     Route: 048
  10. PAMIDRONATE [Concomitant]
     Indication: OSTEOPOROSIS
     Route: 058
  11. ESOMEPRAZOLE [Concomitant]
     Route: 048

REACTIONS (42)
  - Fall [Not Recovered/Not Resolved]
  - Arthralgia [Not Recovered/Not Resolved]
  - Onychomadesis [Not Recovered/Not Resolved]
  - Chest pain [Unknown]
  - Pain [Recovering/Resolving]
  - Stomatitis [Unknown]
  - Tongue ulceration [Unknown]
  - Contusion [Unknown]
  - Skin fissures [Unknown]
  - Pollakiuria [Unknown]
  - Pyrexia [Unknown]
  - Fatigue [Unknown]
  - Nasopharyngitis [Unknown]
  - Somnolence [Unknown]
  - Dyspepsia [Unknown]
  - Back pain [Unknown]
  - Chest pain [Unknown]
  - Dry mouth [Unknown]
  - Diarrhoea [Recovering/Resolving]
  - Myalgia [Unknown]
  - Weight fluctuation [Unknown]
  - Nausea [Not Recovered/Not Resolved]
  - Glossodynia [Not Recovered/Not Resolved]
  - Lip pain [Not Recovered/Not Resolved]
  - Gingival pain [Not Recovered/Not Resolved]
  - Cough [Unknown]
  - Hypoaesthesia [Not Recovered/Not Resolved]
  - Headache [Unknown]
  - Chills [Not Recovered/Not Resolved]
  - Decreased appetite [Unknown]
  - Anxiety [Unknown]
  - Dry skin [Unknown]
  - Paraesthesia [Unknown]
  - Stress [Unknown]
  - Insomnia [Unknown]
  - Metastases to lung [Not Recovered/Not Resolved]
  - Drug ineffective [Unknown]
  - Disease progression [Unknown]
  - Cellulitis [Not Recovered/Not Resolved]
  - Balance disorder [Not Recovered/Not Resolved]
  - Skin disorder [Not Recovered/Not Resolved]
  - Lymphoedema [Not Recovered/Not Resolved]
